FAERS Safety Report 9072890 (Version 1)
Quarter: 2013Q1

REPORT INFORMATION
  Report Type: Report from Study
  Country: US (occurrence: US)
  Receive Date: 20130129
  Receipt Date: 20130129
  Transmission Date: 20140127
  Serious: No
  Sender: FDA-Public Use
  Company Number: US-ABBOTT-12P-163-0942340-00

PATIENT
  Age: 52 Year
  Sex: Male

DRUGS (10)
  1. HUMIRA 40 MG/0.8 ML PEN [Suspect]
     Indication: RHEUMATOID ARTHRITIS
     Dates: start: 201201
  2. METHOTREXATE [Concomitant]
     Indication: RHEUMATOID ARTHRITIS
  3. DIGITEK [Concomitant]
     Indication: PALPITATIONS
     Dosage: ONE AND HALF TABS DAILY
  4. SINGULAR [Concomitant]
     Indication: HYPERSENSITIVITY
     Dosage: 10MG DAILY
  5. COREG [Concomitant]
     Indication: HYPERTENSION
     Dosage: 20MG DAILY
  6. ASA [Concomitant]
     Indication: PROPHYLAXIS
     Dosage: 325MG ONE DAILY
  7. MELOXICAM [Concomitant]
     Indication: RHEUMATOID ARTHRITIS
  8. FOLIC ACID [Concomitant]
     Indication: VITAMIN SUPPLEMENTATION
     Dosage: 1MG DAILY
  9. OMEPRAZOLE [Concomitant]
     Indication: DYSPEPSIA
     Dosage: 20MG DAILY
  10. ALLBUTEROL [Concomitant]
     Indication: ASTHMA
     Route: 055

REACTIONS (1)
  - Injection site pain [Recovered/Resolved]
